FAERS Safety Report 19414828 (Version 2)
Quarter: 2021Q3

REPORT INFORMATION
  Report Type: Report from Study
  Country: US (occurrence: US)
  Receive Date: 20210615
  Receipt Date: 20210714
  Transmission Date: 20211014
  Serious: Yes (Hospitalization, Other)
  Sender: FDA-Public Use
  Company Number: US-BRISTOL-MYERS SQUIBB COMPANY-BMS-2021-045523

PATIENT
  Age: 43 Year
  Sex: Female
  Weight: 64.7 kg

DRUGS (21)
  1. RITUXIMAB. [Suspect]
     Active Substance: RITUXIMAB
     Dosage: 700 MILLIGRAM
     Route: 042
     Dates: start: 20210428, end: 20210428
  2. VINCRISTINE SULFATE. [Suspect]
     Active Substance: VINCRISTINE SULFATE
     Indication: DIFFUSE LARGE B-CELL LYMPHOMA
     Dosage: 0.4 MG/M2/DAY IV
     Route: 042
     Dates: start: 20210224
  3. ETOPOSIDE. [Suspect]
     Active Substance: ETOPOSIDE
     Dosage: 220 MILLIGRAM
     Route: 065
     Dates: start: 20210526, end: 20210530
  4. NIVOLUMAB [Suspect]
     Active Substance: NIVOLUMAB
     Dosage: 207 MILLIGRAM
     Route: 042
     Dates: start: 20210428, end: 20210428
  5. RITUXIMAB. [Suspect]
     Active Substance: RITUXIMAB
     Indication: DIFFUSE LARGE B-CELL LYMPHOMA
     Dosage: 375 MG/M2 IV INFUSION Q21 DAYS
     Route: 042
     Dates: start: 20210224
  6. VINCRISTINE SULFATE. [Suspect]
     Active Substance: VINCRISTINE SULFATE
     Dosage: 1.1 MILLIGRAM
     Route: 042
     Dates: start: 20210526, end: 20210530
  7. CYCLOPHOSPHAMIDE. [Suspect]
     Active Substance: CYCLOPHOSPHAMIDE
     Dosage: 1990 MILLIGRAM
     Route: 042
     Dates: start: 20210502, end: 20210502
  8. ETOPOSIDE. [Suspect]
     Active Substance: ETOPOSIDE
     Indication: DIFFUSE LARGE B-CELL LYMPHOMA
     Dosage: 50 MG/M2/DAY
     Route: 042
     Dates: start: 20210224
  9. VINCRISTINE SULFATE. [Suspect]
     Active Substance: VINCRISTINE SULFATE
     Dosage: 1.1 MILLIGRAM
     Route: 042
     Dates: start: 20210428, end: 20210502
  10. CYCLOPHOSPHAMIDE. [Suspect]
     Active Substance: CYCLOPHOSPHAMIDE
     Dosage: 1660 MILLIGRAM
     Route: 042
     Dates: start: 20210530, end: 20210530
  11. PREDNISONE. [Suspect]
     Active Substance: PREDNISONE
     Dosage: 110 MILLIGRAM
     Route: 048
     Dates: start: 20210428, end: 20210502
  12. NIVOLUMAB [Suspect]
     Active Substance: NIVOLUMAB
     Indication: DIFFUSE LARGE B-CELL LYMPHOMA
     Dosage: 3 MG/KG ON DAY 1 OF EACH CYCLE
     Route: 042
     Dates: start: 20210224
  13. DOXORUBICIN [Suspect]
     Active Substance: DOXORUBICIN
     Indication: DIFFUSE LARGE B-CELL LYMPHOMA
     Dosage: 10 MG/M2/DAY
     Route: 042
     Dates: start: 20210224
  14. CYCLOPHOSPHAMIDE. [Suspect]
     Active Substance: CYCLOPHOSPHAMIDE
     Indication: DIFFUSE LARGE B-CELL LYMPHOMA
     Dosage: 750 MG/M2/DAY
     Route: 042
     Dates: start: 20210224
  15. PREDNISONE. [Suspect]
     Active Substance: PREDNISONE
     Dosage: 110 MILLIGRAM
     Route: 048
     Dates: start: 20210526, end: 20210530
  16. NIVOLUMAB [Suspect]
     Active Substance: NIVOLUMAB
     Dosage: 207 MILLIGRAM
     Route: 042
     Dates: start: 20210526, end: 20210526
  17. RITUXIMAB. [Suspect]
     Active Substance: RITUXIMAB
     Dosage: 700 MILLIGRAM
     Route: 042
     Dates: start: 20210526, end: 20210526
  18. ETOPOSIDE. [Suspect]
     Active Substance: ETOPOSIDE
     Dosage: 264 MILLIGRAM
     Route: 042
     Dates: start: 20210428, end: 20210502
  19. DOXORUBICIN [Suspect]
     Active Substance: DOXORUBICIN
     Dosage: 53 MILLIGRAM
     Route: 042
     Dates: start: 20210428, end: 20210502
  20. DOXORUBICIN [Suspect]
     Active Substance: DOXORUBICIN
     Dosage: 44 MILLIGRAM
     Route: 042
     Dates: start: 20210526, end: 20210530
  21. PREDNISONE. [Suspect]
     Active Substance: PREDNISONE
     Indication: DIFFUSE LARGE B-CELL LYMPHOMA
     Dosage: 60 MG/M2
     Route: 048
     Dates: start: 20210224

REACTIONS (6)
  - Abdominal discomfort [Unknown]
  - Proctalgia [Unknown]
  - Vaginal ulceration [Unknown]
  - Pancytopenia [Unknown]
  - Stomatitis [Recovered/Resolved]
  - Mucosal inflammation [Not Recovered/Not Resolved]

NARRATIVE: CASE EVENT DATE: 20210509
